FAERS Safety Report 25899194 (Version 1)
Quarter: 2025Q4

REPORT INFORMATION
  Report Type: Report from Study
  Country: US (occurrence: US)
  Receive Date: 20251009
  Receipt Date: 20251009
  Transmission Date: 20260118
  Serious: Yes (Other)
  Sender: ALEXION PHARMACEUTICALS
  Company Number: US-ASTRAZENECA-202509NAM028353US

PATIENT
  Age: 57 Year
  Sex: Female

DRUGS (1)
  1. STRENSIQ [Suspect]
     Active Substance: ASFOTASE ALFA
     Indication: Hypophosphataemia
     Dosage: 1 MILLIGRAM/KILOGRAM, SIX TIMES/WEEK (80 MG VIAL)
     Route: 065

REACTIONS (2)
  - Macular degeneration [Unknown]
  - Corneal deposits [Unknown]

NARRATIVE: CASE EVENT DATE: 20240101
